FAERS Safety Report 5415854-X (Version None)
Quarter: 2007Q3

REPORT INFORMATION
  Report Type: 
  Country: None (occurrence: None)
  Receive Date: 20070815
  Receipt Date: 20070806
  Transmission Date: 20080115
  Serious: Yes (Life-Threatening, Hospitalization, Other)
  Sender: FDA-Public Use
  Company Number: DE-PFIZER INC-2007064803

PATIENT
  Sex: Female
  Weight: 60 kg

DRUGS (5)
  1. CELEBREX [Suspect]
     Indication: SPONDYLITIS
     Route: 048
     Dates: start: 20010503, end: 20030201
  2. SULFASALAZIN [Concomitant]
     Route: 048
     Dates: start: 20010503, end: 20030201
  3. PREDNISONE TAB [Concomitant]
  4. AZULFIDINE [Concomitant]
  5. VIDISIC [Concomitant]

REACTIONS (2)
  - SMALL INTESTINE CARCINOMA [None]
  - VENOUS THROMBOSIS [None]
